FAERS Safety Report 20121711 (Version 2)
Quarter: 2022Q1

REPORT INFORMATION
  Report Type: Spontaneous
  Country: US (occurrence: US)
  Receive Date: 20211128
  Receipt Date: 20220203
  Transmission Date: 20220424
  Serious: Yes (Other)
  Sender: FDA-Public Use
  Company Number: US-BEH-2021138604

PATIENT
  Sex: Male

DRUGS (1)
  1. HIZENTRA [Suspect]
     Active Substance: HUMAN IMMUNOGLOBULIN G
     Indication: Immunodeficiency common variable
     Dosage: 11 GRAM, QW
     Route: 058
     Dates: start: 201809

REACTIONS (5)
  - Addison^s disease [Unknown]
  - Renal disorder [Unknown]
  - Skin infection [Unknown]
  - Oedema peripheral [Unknown]
  - Varicose vein [Unknown]
